FAERS Safety Report 9360754 (Version 1)
Quarter: 2013Q2

REPORT INFORMATION
  Report Type: Spontaneous
  Country: US (occurrence: US)
  Receive Date: 20130621
  Receipt Date: 20130621
  Transmission Date: 20140414
  Serious: Yes (Hospitalization, Other)
  Sender: FDA-Public Use
  Company Number: US-ASTRAZENECA-2013SE46864

PATIENT
  Sex: Female
  Weight: 58.5 kg

DRUGS (4)
  1. LISINOPRIL [Suspect]
     Indication: HYPERTENSION
     Route: 048
  2. TAMOXIFEN [Suspect]
     Indication: BREAST CANCER FEMALE
     Dosage: DAILY
     Route: 048
  3. FASLODEX [Suspect]
     Indication: BREAST CANCER RECURRENT
     Dosage: 2 250 MG INJECTION, BI-MONTHLY
     Route: 030
     Dates: start: 20130116
  4. FASLODEX [Suspect]
     Indication: BREAST CANCER RECURRENT
     Dosage: 2 250 MG INJECTION, MONTHLY
     Route: 030

REACTIONS (6)
  - Breast cancer female [Unknown]
  - Lung disorder [Recovered/Resolved]
  - Metastasis [Unknown]
  - Tumour marker increased [Unknown]
  - Insomnia [Recovered/Resolved]
  - Adverse event [Recovered/Resolved]
